FAERS Safety Report 21188691 (Version 1)
Quarter: 2022Q3

REPORT INFORMATION
  Report Type: Spontaneous
  Country: US (occurrence: US)
  Receive Date: 20220809
  Receipt Date: 20220809
  Transmission Date: 20221027
  Serious: Yes (Other)
  Sender: FDA-Public Use
  Company Number: US-ADVANZ PHARMA-202207004648

PATIENT

DRUGS (2)
  1. DIGOXIN [Suspect]
     Active Substance: DIGOXIN
     Indication: Atrial tachycardia
     Dosage: 16 UG/KG
     Route: 051
  2. DIGOXIN [Suspect]
     Active Substance: DIGOXIN
     Dosage: 3 UG/KG, BID
     Route: 051

REACTIONS (3)
  - Atrial tachycardia [Recovering/Resolving]
  - Condition aggravated [Recovering/Resolving]
  - Haemodynamic instability [Recovering/Resolving]
